FAERS Safety Report 15036574 (Version 1)
Quarter: 2018Q2

REPORT INFORMATION
  Report Type: Spontaneous
  Country: US (occurrence: US)
  Receive Date: 20180530
  Receipt Date: 20180530
  Transmission Date: 20180711
  Serious: Yes (Disabling)
  Sender: FDA-Public Use
  Company Number: None

PATIENT
  Age: 71 Year
  Weight: 72.58 kg

DRUGS (11)
  1. AMLODIPINE BESYLATE 5MG [Suspect]
     Active Substance: AMLODIPINE BESYLATE
     Indication: HYPERTENSION
     Dosage: ?          QUANTITY:30 TOT - TOTAL;?
     Route: 048
     Dates: start: 20180406, end: 20180427
  2. IPRATROPIUM BROMIDE 0.5MG/ALBUTEROL SULFATE [Concomitant]
  3. CLARITIN [Concomitant]
     Active Substance: LORATADINE
  4. CARVEDILOL. [Concomitant]
     Active Substance: CARVEDILOL
  5. BACLOFEN. [Concomitant]
     Active Substance: BACLOFEN
  6. TYLENOL EXTRA STRENGTH [Concomitant]
     Active Substance: ACETAMINOPHEN
  7. NEBULIZER [Concomitant]
     Active Substance: DEVICE
  8. GABAPENTIN. [Concomitant]
     Active Substance: GABAPENTIN
  9. LOSARTAN POTASSIUM. [Concomitant]
     Active Substance: LOSARTAN POTASSIUM
  10. MULTI-VITAMIN [Concomitant]
     Active Substance: .ALPHA.-TOCOPHEROL ACETATE, DL-\ASCORBIC ACID\CYANOCOBALAMIN\FLUORIDE ION\FOLIC ACID\NIACIN\PYRIDOXINE\RIBOFLAVIN\THIAMINE\VITAMIN A\VITAMIN D
  11. MONTELUKAST SODIUM. [Concomitant]
     Active Substance: MONTELUKAST SODIUM

REACTIONS (1)
  - Glossitis [None]

NARRATIVE: CASE EVENT DATE: 20180406
